FAERS Safety Report 13010704 (Version 1)
Quarter: 2016Q4

REPORT INFORMATION
  Report Type: Spontaneous
  Country: US (occurrence: US)
  Receive Date: 20161208
  Receipt Date: 20161208
  Transmission Date: 20170207
  Serious: No
  Sender: FDA-Public Use
  Company Number: US-AMGEN-USASP2016120285

PATIENT
  Age: 56 Year
  Sex: Female

DRUGS (2)
  1. BLINCYTO [Suspect]
     Active Substance: BLINATUMOMAB
     Indication: ACUTE LYMPHOCYTIC LEUKAEMIA
     Dosage: 9 MUG, QD
     Route: 065
     Dates: start: 20160829
  2. BLINCYTO [Suspect]
     Active Substance: BLINATUMOMAB
     Dosage: 9 MUG, QD
     Route: 065
     Dates: start: 20160902

REACTIONS (1)
  - Rash [Recovered/Resolved]

NARRATIVE: CASE EVENT DATE: 20160829
